FAERS Safety Report 4535014-4 (Version None)
Quarter: 2004Q4

REPORT INFORMATION
  Report Type: 
  Country: None (occurrence: None)
  Receive Date: 20041214
  Receipt Date: 20041029
  Transmission Date: 20050328
  Serious: No
  Sender: FDA-Public Use
  Company Number: 2004227901US

PATIENT
  Sex: Female
  Weight: 56.7 kg

DRUGS (2)
  1. BEXTRA [Suspect]
     Indication: TENDONITIS
     Dosage: 10 MG, QD
     Dates: start: 20040601
  2. LISINOPRIL [Concomitant]

REACTIONS (1)
  - FORMICATION [None]
